FAERS Safety Report 10576333 (Version 1)
Quarter: 2014Q4

REPORT INFORMATION
  Report Type: Spontaneous
  Country: US (occurrence: US)
  Receive Date: 20141111
  Receipt Date: 20141111
  Transmission Date: 20150529
  Serious: Yes (Death, Hospitalization)
  Sender: FDA-Public Use
  Company Number: US-UNITED THERAPEUTICS-UNT-2014-010460

PATIENT
  Age: 89 Year
  Sex: Female
  Weight: 65.76 kg

DRUGS (1)
  1. REMODULIN [Suspect]
     Active Substance: TREPROSTINIL
     Indication: PRODUCT USED FOR UNKNOWN INDICATION
     Dosage: 0.029 ?G/KG, CONTINUING
     Route: 041
     Dates: start: 20080916

REACTIONS (4)
  - Oedema [Unknown]
  - Death [Fatal]
  - Skin discolouration [Unknown]
  - Fall [Unknown]

NARRATIVE: CASE EVENT DATE: 20141031
